FAERS Safety Report 8427540-2 (Version None)
Quarter: 2012Q2

REPORT INFORMATION
  Report Type: 
  Country: None (occurrence: None)
  Receive Date: 20120611
  Receipt Date: 20120604
  Transmission Date: 20120825
  Serious: Yes (Hospitalization)
  Sender: FDA-Public Use
  Company Number: US-TEVA-341445USA

PATIENT
  Sex: Male
  Weight: 71.278 kg

DRUGS (3)
  1. PREDNISONE TAB [Concomitant]
  2. PROAIR HFA [Suspect]
     Indication: ASTHMA
     Dosage: 6-8 PUFFS Q 4-6 HOURS PRN
     Dates: start: 20120101
  3. ALPRAZOLAM [Concomitant]

REACTIONS (3)
  - ASTHMA [None]
  - PANIC ATTACK [None]
  - ANXIETY [None]
